FAERS Safety Report 5760886-5 (Version None)
Quarter: 2008Q2

REPORT INFORMATION
  Report Type: 
  Country: None (occurrence: None)
  Receive Date: 20080606
  Receipt Date: 20080529
  Transmission Date: 20081010
  Serious: Yes (Hospitalization)
  Sender: FDA-Public Use
  Company Number: US-AMGEN-QUU254025

PATIENT
  Sex: Female

DRUGS (2)
  1. ENBREL [Suspect]
     Indication: RHEUMATOID ARTHRITIS
     Route: 058
     Dates: start: 20070831
  2. ENBREL [Suspect]
     Indication: PSORIATIC ARTHROPATHY

REACTIONS (6)
  - ASTHMA [None]
  - BLOOD GLUCOSE INCREASED [None]
  - ELECTROLYTE IMBALANCE [None]
  - RHEUMATOID ARTHRITIS [None]
  - VISION BLURRED [None]
  - WEIGHT DECREASED [None]
